FAERS Safety Report 9527708 (Version 1)
Quarter: 2013Q3

REPORT INFORMATION
  Report Type: Spontaneous
  Country: US (occurrence: US)
  Receive Date: 20130917
  Receipt Date: 20130917
  Transmission Date: 20140515
  Serious: No
  Sender: FDA-Public Use
  Company Number: US-BAYER-2013-111847

PATIENT
  Age: 50 Year
  Sex: Female
  Weight: 77 kg

DRUGS (1)
  1. BETASERON [Suspect]
     Dosage: 0.25 MG, QOD
     Route: 058
     Dates: start: 20060312

REACTIONS (4)
  - Influenza like illness [Unknown]
  - Pain [Unknown]
  - Nausea [Unknown]
  - Vomiting [Unknown]
